FAERS Safety Report 26006400 (Version 1)
Quarter: 2025Q4

REPORT INFORMATION
  Report Type: Spontaneous
  Country: US (occurrence: None)
  Receive Date: 20251105
  Receipt Date: 20251105
  Transmission Date: 20260117
  Serious: Yes (Other)
  Sender: FDA-CTU
  Company Number: None

PATIENT
  Age: 64 Year
  Sex: Female
  Weight: 40.5 kg

DRUGS (3)
  1. SIMLANDI [Suspect]
     Active Substance: ADALIMUMAB-RYVK
     Dosage: OTHER FREQUENCY : EVERY 2 WEEJS;?
     Route: 058
  2. INFLUENZA VIRUS VACCINE [Suspect]
     Active Substance: INFLUENZA VIRUS VACCINE
  3. Simlandi 40mg/0.4ml [Concomitant]

REACTIONS (4)
  - Sinusitis [None]
  - Bronchitis [None]
  - Injection site urticaria [None]
  - Therapy interrupted [None]

NARRATIVE: CASE EVENT DATE: 20251027
